FAERS Safety Report 4685962-X (Version None)
Quarter: 2005Q2

REPORT INFORMATION
  Report Type: 
  Country: None (occurrence: None)
  Receive Date: 20050607
  Receipt Date: 20050607
  Transmission Date: 20051028
  Serious: Yes (Other)
  Sender: FDA-Public Use
  Company Number: None

PATIENT
  Age: 43 Year
  Sex: Female
  Weight: 74.3899 kg

DRUGS (8)
  1. PEG-INTRON [Suspect]
     Indication: HEPATITIS C
     Dosage: 120 MCG ONE WEEKLY SUBCUTANEOUS
     Route: 058
     Dates: start: 20050212, end: 20050518
  2. RIBAVIRIN [Suspect]
     Indication: HEPATITIS C
     Dosage: 200 MG 2QAM + 3 QPM  ORAL
     Route: 048
     Dates: start: 20050212, end: 20050518
  3. NORVASC [Concomitant]
  4. DONNATAL [Concomitant]
  5. BENADRYL [Concomitant]
  6. MULTI-VITAMIN [Concomitant]
  7. TYLENOL [Concomitant]
  8. IBUPROFEN [Concomitant]

REACTIONS (3)
  - CHEST PAIN [None]
  - DYSKINESIA [None]
  - PRURITUS [None]
